FAERS Safety Report 4990801-3 (Version None)
Quarter: 2006Q2

REPORT INFORMATION
  Report Type: 
  Country: None (occurrence: None)
  Receive Date: 20060428
  Receipt Date: 20060412
  Transmission Date: 20061013
  Serious: Yes (Other)
  Sender: FDA-Public Use
  Company Number: 2006EU001236

PATIENT
  Sex: Female

DRUGS (3)
  1. PROTOPIC [Suspect]
     Indication: DERMATITIS ATOPIC
     Dosage: 0.03%, OTHER, TOPICAL
     Route: 061
     Dates: start: 20030214, end: 20050830
  2. CORTICOSTEROIDS, DERMATOLOGICAL PREPARATIONS [Concomitant]
  3. ANTIBIOTICS [Concomitant]

REACTIONS (1)
  - BREAST CANCER FEMALE [None]
